FAERS Safety Report 19117370 (Version 3)
Quarter: 2021Q2

REPORT INFORMATION
  Report Type: Spontaneous
  Country: IT (occurrence: IT)
  Receive Date: 20210409
  Receipt Date: 20210422
  Transmission Date: 20210717
  Serious: Yes (Other)
  Sender: FDA-Public Use
  Company Number: IT-ALLERGAN-2113954US

PATIENT
  Sex: Female

DRUGS (5)
  1. OMEPRAZOLE. [Suspect]
     Active Substance: OMEPRAZOLE
     Indication: HELICOBACTER INFECTION
     Route: 048
     Dates: start: 20210307
  2. TIMOGEL [Concomitant]
     Active Substance: TIMOLOL MALEATE
     Dosage: OPHTALMIC GEL SINGLE?DOSE
  3. ALONEB [Concomitant]
     Active Substance: HYDROCHLOROTHIAZIDE\NEBIVOLOL HYDROCHLORIDE
  4. PYLERA [Suspect]
     Active Substance: BISMUTH SUBCITRATE POTASSIUM\METRONIDAZOLE\TETRACYCLINE HYDROCHLORIDE
     Indication: HELICOBACTER INFECTION
     Dosage: UNK
     Dates: start: 20210307
  5. OLMESARTAN MEDOXOMIL/AMLODIPINA [Concomitant]

REACTIONS (4)
  - Tremor [Unknown]
  - Feeling abnormal [Unknown]
  - Chest pain [Unknown]
  - Abdominal pain upper [Unknown]

NARRATIVE: CASE EVENT DATE: 20210307
